FAERS Safety Report 19705440 (Version 3)
Quarter: 2022Q3

REPORT INFORMATION
  Report Type: Spontaneous
  Country: US (occurrence: US)
  Receive Date: 20210816
  Receipt Date: 20220804
  Transmission Date: 20221027
  Serious: Yes (Other)
  Sender: FDA-Public Use
  Company Number: US-PFIZER INC-2021677794

PATIENT
  Age: 85 Year
  Sex: Female

DRUGS (2)
  1. XELJANZ [Suspect]
     Active Substance: TOFACITINIB CITRATE
     Indication: Rheumatoid arthritis
     Dosage: 5 MG, ALTERNATE DAY (DAILY ALTERNATING WITH 5MG TWICE DAILY)
     Route: 048
     Dates: start: 2018
  2. PREDNISONE [Suspect]
     Active Substance: PREDNISONE
     Dosage: UNK

REACTIONS (7)
  - Rheumatoid arthritis [Unknown]
  - Intraocular pressure increased [Unknown]
  - Hypertension [Recovering/Resolving]
  - Off label use [Unknown]
  - Depressed mood [Unknown]
  - Lung disorder [Unknown]
  - Blood creatinine increased [Unknown]
